FAERS Safety Report 4838959-0 (Version None)
Quarter: 2005Q4

REPORT INFORMATION
  Report Type: 
  Country: None (occurrence: None)
  Receive Date: 20051129
  Receipt Date: 20051117
  Transmission Date: 20060501
  Serious: Yes (Disabling)
  Sender: FDA-Public Use
  Company Number: 2005SE06708

PATIENT
  Age: 35 Year
  Sex: Female

DRUGS (1)
  1. PULMICORT [Suspect]
     Dosage: 400-800 MCG PER DAY
     Route: 055
     Dates: start: 20010601, end: 20020901

REACTIONS (3)
  - CHRONIC FATIGUE SYNDROME [None]
  - DEPRESSION [None]
  - POST VIRAL FATIGUE SYNDROME [None]
